FAERS Safety Report 8086369-8 (Version None)
Quarter: 2012Q1

REPORT INFORMATION
  Report Type: 
  Country: None (occurrence: None)
  Receive Date: 20120128
  Receipt Date: 20110505
  Transmission Date: 20120608
  Serious: No
  Sender: FDA-Public Use
  Company Number: US-ABBOTT-11P-163-0723762-00

PATIENT
  Sex: Female

DRUGS (15)
  1. PREDNISONE TAB [Concomitant]
     Indication: CROHN'S DISEASE
  2. SYNTHROID [Concomitant]
     Indication: HYPOTHYROIDISM
  3. GEMFIBROZIL [Concomitant]
     Indication: BLOOD TRIGLYCERIDES INCREASED
  4. FISH OIL [Concomitant]
     Indication: PRODUCT USED FOR UNKNOWN INDICATION
  5. EFFEXOR XR [Concomitant]
     Indication: DEPRESSION
  6. VITAMIN B-12 [Concomitant]
     Indication: PRODUCT USED FOR UNKNOWN INDICATION
  7. SIMVASTATIN [Concomitant]
     Indication: BLOOD CHOLESTEROL INCREASED
  8. HUMIRA [Suspect]
     Indication: CROHN'S DISEASE
     Route: 058
     Dates: start: 20110419
  9. VALIUM [Concomitant]
     Indication: ANXIETY
  10. VITAMIN D [Concomitant]
     Indication: PRODUCT USED FOR UNKNOWN INDICATION
  11. SOMA [Concomitant]
     Indication: PAIN
     Dosage: 1 TO 2 TABLETS, AS NEEDED
  12. FELODIPINE [Concomitant]
     Indication: HYPERTENSION
  13. LORTAB [Concomitant]
     Indication: PAIN
  14. DILAUDID [Concomitant]
     Indication: PAIN
  15. FERROUS SULFATE TAB [Concomitant]
     Indication: MINERAL SUPPLEMENTATION

REACTIONS (1)
  - INJECTION SITE PAIN [None]
